FAERS Safety Report 5240184-9 (Version None)
Quarter: 2007Q1

REPORT INFORMATION
  Report Type: 
  Country: None (occurrence: None)
  Receive Date: 20070219
  Receipt Date: 20070129
  Transmission Date: 20070707
  Serious: Yes (Death, Hospitalization)
  Sender: FDA-Public Use
  Company Number: SE-ROCHE-481030

PATIENT
  Age: 35 Year
  Sex: Male

DRUGS (23)
  1. CYMEVENE [Suspect]
     Indication: DRUG USE FOR UNKNOWN INDICATION
     Dosage: FOUR DOSES EACH 285 MG WERE GIVEN AT LEAST.
     Route: 065
     Dates: start: 20050914
  2. ABBOTICIN [Concomitant]
  3. ACETYLCYSTEINE [Concomitant]
     Dosage: DURING GANCICLOVIR INTOXICATION.
  4. ALBUMIN (HUMAN) [Concomitant]
     Dosage: DURING GANCICLOVIR INTOXICATION.
  5. ANDAPSIN [Concomitant]
  6. BACTRIM [Concomitant]
     Dosage: DURING GANCICLOVIR INTOXICATION.
  7. CLAFORAN [Concomitant]
  8. DICLOCIL [Concomitant]
     Dosage: DURING GANCICLOVIR INTOXICATION.
  9. DIFLUCAN [Concomitant]
     Dosage: DURING GANCICLOVIR INTOXICATION.
  10. ENTOCORT [Concomitant]
     Dosage: DURING GANCICLOVIR INTOXICATION.
  11. FURIX [Concomitant]
     Dosage: DURING GANCICLOVIR INTOXICATION.
  12. VANCOMYCIN HCL [Concomitant]
  13. KONAKION [Concomitant]
  14. LOSEC [Concomitant]
     Dosage: DURING GANCICLOVIR INTOXICATION.
  15. MERONEM [Concomitant]
  16. MYCOSTATIN [Concomitant]
     Dosage: DURING GANCICLOVIR INTOXICATION.
  17. NAVOBAN [Concomitant]
  18. PREDNISOLONE [Concomitant]
     Dosage: DURING GANCICLOVIR INTOXICATION.
  19. METOPROLOL TARTRATE [Concomitant]
  20. SOLU-MEDROL [Concomitant]
     Dosage: DURING GANCICLOVIR INTOXICATION. REPORTED TRADE NAME: SOLUMEDROL.
  21. TAGAMET [Concomitant]
  22. URSO FALK [Concomitant]
     Dosage: DURING GANCICLOVIR INTOXICATION.
  23. VALACYCLOVIR HCL [Concomitant]

REACTIONS (29)
  - ABDOMINAL DISTENSION [None]
  - ANXIETY [None]
  - BLOOD BILIRUBIN INCREASED [None]
  - C-REACTIVE PROTEIN INCREASED [None]
  - CYTOMEGALOVIRUS TEST [None]
  - DRUG TOXICITY [None]
  - DYSPNOEA [None]
  - EPSTEIN-BARR VIRUS INFECTION [None]
  - GASTROINTESTINAL HAEMORRHAGE [None]
  - HEPATIC FAILURE [None]
  - HYPOTONIA [None]
  - ILEUS [None]
  - LEUKOPENIA [None]
  - LOSS OF CONSCIOUSNESS [None]
  - MELAENA [None]
  - MULTI-ORGAN FAILURE [None]
  - NEUROLOGICAL SYMPTOM [None]
  - OEDEMA PERIPHERAL [None]
  - PAIN [None]
  - PETECHIAE [None]
  - PURPURA [None]
  - RASH [None]
  - RED BLOOD CELL SCHISTOCYTES PRESENT [None]
  - RENAL FAILURE [None]
  - RESPIRATORY TRACT HAEMORRHAGE [None]
  - SOMNOLENCE [None]
  - TACHYCARDIA [None]
  - TACHYPNOEA [None]
  - THROMBOTIC THROMBOCYTOPENIC PURPURA [None]
